FAERS Safety Report 24830782 (Version 1)
Quarter: 2025Q1

REPORT INFORMATION
  Report Type: Spontaneous
  Country: JP (occurrence: JP)
  Receive Date: 20250110
  Receipt Date: 20250110
  Transmission Date: 20250409
  Serious: Yes (Other)
  Sender: RANBAXY
  Company Number: JP-SUN PHARMACEUTICAL INDUSTRIES LTD-2024R1-488686

PATIENT
  Age: 30 Year
  Sex: Male

DRUGS (2)
  1. MESALAMINE [Suspect]
     Active Substance: MESALAMINE
     Indication: Colitis ulcerative
     Dosage: 2000 MILLIGRAM, DAILY
     Route: 065
  2. MESALAMINE [Suspect]
     Active Substance: MESALAMINE
     Dosage: 4000 MILLIGRAM, DAILY
     Route: 065

REACTIONS (3)
  - Pericarditis [Unknown]
  - Colitis ulcerative [Unknown]
  - Pericardial effusion [Unknown]
